FAERS Safety Report 4303924-9 (Version None)
Quarter: 2004Q1

REPORT INFORMATION
  Report Type: 
  Country: None (occurrence: None)
  Receive Date: 20040225
  Receipt Date: 20040219
  Transmission Date: 20041129
  Serious: Yes (Other)
  Sender: FDA-Public Use
  Company Number: WAES 0402USA01500

PATIENT
  Sex: Male

DRUGS (2)
  1. EPIPEN [Suspect]
     Dates: start: 20040214, end: 20040214
  2. VIOXX [Suspect]
     Route: 048

REACTIONS (2)
  - ANGIONEUROTIC OEDEMA [None]
  - MYOCARDIAL INFARCTION [None]
